FAERS Safety Report 5735530-3 (Version None)
Quarter: 2008Q2

REPORT INFORMATION
  Report Type: 
  Country: None (occurrence: None)
  Receive Date: 20080508
  Receipt Date: 20070709
  Transmission Date: 20081010
  Serious: Yes (Disabling, Other)
  Sender: FDA-Public Use
  Company Number: 2007RR-08613

PATIENT
  Age: 50 Year
  Sex: Male

DRUGS (6)
  1. ATORVASTATIN CALCIUM [Suspect]
     Dosage: 10 MG, QD; ORAL
     Route: 048
     Dates: start: 20050914, end: 20070530
  2. SIMVASTATIN [Suspect]
     Dosage: 20 MG QD; ORAL
     Route: 048
     Dates: start: 20070530, end: 20070628
  3. AMLODIPINE MALEATE (AMLODIPINE) [Concomitant]
  4. BENDROFLUMETHIAZIDE (BENDROFLUAZIDE) [Concomitant]
  5. MOXONIDINE (MOXONIDINE) [Concomitant]
  6. PERINDOPRIL ERBUMINE [Concomitant]

REACTIONS (1)
  - TENDONITIS [None]
